FAERS Safety Report 4286710-8 (Version None)
Quarter: 2004Q1

REPORT INFORMATION
  Report Type: 
  Country: None (occurrence: None)
  Receive Date: 20040204
  Receipt Date: 20040120
  Transmission Date: 20041129
  Serious: Yes (Other)
  Sender: FDA-Public Use
  Company Number: 2004-00047FE

PATIENT
  Age: 3 Year
  Sex: Male

DRUGS (1)
  1. MESALAMINE [Suspect]
     Dosage: INTRAUTERINE
     Route: 015

REACTIONS (2)
  - DEAFNESS [None]
  - MATERNAL DRUGS AFFECTING FOETUS [None]
